FAERS Safety Report 7408669-4 (Version None)
Quarter: 2011Q2

REPORT INFORMATION
  Report Type: 
  Country: None (occurrence: None)
  Receive Date: 20110404
  Receipt Date: 20110321
  Transmission Date: 20111010
  Serious: No
  Sender: FDA-Public Use
  Company Number: 029769

PATIENT
  Age: 28 Year
  Sex: Female

DRUGS (5)
  1. FOLIC ACID [Concomitant]
  2. PRENATAL VITAMINS /01549301/ [Concomitant]
  3. MUCINEX [Concomitant]
  4. KEPPRA [Suspect]
     Indication: EPILEPSY
     Dosage: (500 MG, THREE 500 MG CAPSULES IN AM AND THREE 500 MG CAPSULES IN PM)
  5. VITAMINS NOS [Concomitant]

REACTIONS (3)
  - PREGNANCY [None]
  - NASOPHARYNGITIS [None]
  - DRUG EXPOSURE DURING PREGNANCY [None]
